FAERS Safety Report 26177802 (Version 1)
Quarter: 2025Q4

REPORT INFORMATION
  Report Type: Spontaneous
  Country: IN (occurrence: IN)
  Receive Date: 20251219
  Receipt Date: 20251219
  Transmission Date: 20260118
  Serious: Yes (Other)
  Sender: COOPERSURGICAL
  Company Number: IN-COOPERSURGICAL, INC.-2025CPS008445

PATIENT
  Age: 4 Decade
  Sex: Female

DRUGS (1)
  1. COPPER [Suspect]
     Active Substance: COPPER
     Dosage: UNK
     Route: 015

REACTIONS (4)
  - Calculus bladder [Recovered/Resolved]
  - Bladder hypertrophy [Recovered/Resolved]
  - Lower urinary tract symptoms [Recovered/Resolved]
  - Device dislocation [Recovered/Resolved]
